FAERS Safety Report 11184865 (Version 1)
Quarter: 2015Q2

REPORT INFORMATION
  Report Type: Spontaneous
  Country: US (occurrence: None)
  Receive Date: 20150611
  Receipt Date: 20150611
  Transmission Date: 20150821
  Serious: Yes (Hospitalization)
  Sender: FDA-Public Use
  Company Number: None

PATIENT
  Age: 61 Year
  Sex: Male

DRUGS (2)
  1. HARVONI [Suspect]
     Active Substance: LEDIPASVIR\SOFOSBUVIR
     Indication: HEPATITIS C
     Route: 048
  2. TRAMADOL [Concomitant]
     Active Substance: TRAMADOL

REACTIONS (5)
  - Stoma site reaction [None]
  - Hypotension [None]
  - Diarrhoea [None]
  - Varicose vein [None]
  - Dehydration [None]

NARRATIVE: CASE EVENT DATE: 20150610
